FAERS Safety Report 24348442 (Version 2)
Quarter: 2024Q4

REPORT INFORMATION
  Report Type: Report from Study
  Country: BE (occurrence: BE)
  Receive Date: 20240923
  Receipt Date: 20241120
  Transmission Date: 20250115
  Serious: Yes (Hospitalization, Other)
  Sender: AUROBINDO
  Company Number: BE-AUROBINDO-AUR-APL-2024-045564

PATIENT
  Age: 62 Year
  Sex: Female

DRUGS (1)
  1. AMOXICILLIN\CLAVULANIC ACID [Suspect]
     Active Substance: AMOXICILLIN\CLAVULANIC ACID
     Indication: Bronchitis
     Dosage: THE SECOND COURSE OF ANTIBACTERIAL TREATMENT
     Route: 065

REACTIONS (2)
  - Acute disseminated encephalomyelitis [Recovered/Resolved]
  - Infection masked [Unknown]
